FAERS Safety Report 7385021-1 (Version None)
Quarter: 2011Q1

REPORT INFORMATION
  Report Type: 
  Country: None (occurrence: None)
  Receive Date: 20110330
  Receipt Date: 20110308
  Transmission Date: 20110831
  Serious: Yes (Hospitalization)
  Sender: FDA-Public Use
  Company Number: DE-BAYER-200915659GPV

PATIENT
  Age: 76 Year
  Sex: Female
  Weight: 75 kg

DRUGS (6)
  1. SIMVASTATIN [Concomitant]
     Indication: HYPERLIPIDAEMIA
     Route: 048
     Dates: start: 20080201
  2. MICTONORM [Concomitant]
     Indication: URINARY INCONTINENCE
     Route: 048
     Dates: start: 20080528
  3. NITROXOLINE FORTE [Concomitant]
     Indication: URINARY TRACT INFECTION
     Route: 048
     Dates: start: 20080528
  4. PLAVIX [Suspect]
     Indication: CEREBROVASCULAR ACCIDENT
     Route: 048
     Dates: start: 20080325, end: 20080601
  5. ASPIRIN [Suspect]
     Indication: CEREBROVASCULAR ACCIDENT
     Route: 048
     Dates: end: 20080601
  6. OMEPRAZOLE [Concomitant]
     Indication: VARICES OESOPHAGEAL
     Route: 048
     Dates: start: 20080525

REACTIONS (1)
  - GASTROINTESTINAL HAEMORRHAGE [None]
